FAERS Safety Report 17285718 (Version 3)
Quarter: 2020Q1

REPORT INFORMATION
  Report Type: Spontaneous
  Country: US (occurrence: US)
  Receive Date: 20200118
  Receipt Date: 20200314
  Transmission Date: 20200409
  Serious: Yes (Hospitalization, Other)
  Sender: FDA-Public Use
  Company Number: US-ROCHE-2525526

PATIENT
  Sex: Female
  Weight: 90.8 kg

DRUGS (15)
  1. ACTEMRA [Suspect]
     Active Substance: TOCILIZUMAB
     Route: 058
     Dates: start: 201912
  2. VITAMIN B COMPLEX [Concomitant]
     Active Substance: CYANOCOBALAMIN\DEXPANTHENOL\NIACINAMIDE\PYRIDOXINE HYDROCHLORIDE\RIBOFLAVIN 5^-PHOSPHATE SODIUM\THIAMINE HYDROCHLORIDE\VITAMIN B COMPLEX
     Indication: ASTHENIA
     Dosage: STARTED AFTER ACTEMRA; ONGOING YES
     Route: 065
  3. FOLIC ACID. [Concomitant]
     Active Substance: FOLIC ACID
     Dosage: STARTED PRIOR TO ACTEMRA; ONGOING YES
     Route: 065
  4. SKELAXIN [METAXALONE] [Concomitant]
     Route: 065
     Dates: start: 2012
  5. ASPIRIN 81 [Concomitant]
     Active Substance: ASPIRIN
     Route: 065
     Dates: start: 2011
  6. LEFLUNOMIDE. [Concomitant]
     Active Substance: LEFLUNOMIDE
     Indication: RHEUMATOID ARTHRITIS
     Dosage: STARTED PRIOR TO ACTEMRA; ONGOING YES
     Route: 065
  7. ACTEMRA [Suspect]
     Active Substance: TOCILIZUMAB
     Indication: RHEUMATOID ARTHRITIS
     Dosage: ONGOING: UNKNOWN; FORM STRENGTH: 162 MG/ 0.9 MOLAR
     Route: 058
     Dates: start: 20120101
  8. CRESTOR [Concomitant]
     Active Substance: ROSUVASTATIN CALCIUM
     Indication: BLOOD CHOLESTEROL INCREASED
     Route: 065
     Dates: start: 2011
  9. RESTASIS [Concomitant]
     Active Substance: CYCLOSPORINE
     Dosage: STARTED AFTER ACTEMRA; ONGOING YES
     Route: 047
  10. NORCO [Concomitant]
     Active Substance: ACETAMINOPHEN\HYDROCODONE BITARTRATE
     Indication: PAIN
     Dosage: 10-325 - UP TO FOUR TIMES A DAY; ONGOING YES
     Route: 065
  11. PROPANOLOL [PROPRANOLOL] [Concomitant]
     Active Substance: PROPRANOLOL HYDROCHLORIDE
     Indication: MIGRAINE
     Route: 065
  12. TRAZODONE [Concomitant]
     Active Substance: TRAZODONE HYDROCHLORIDE
     Route: 065
  13. PROAIR HFA [Concomitant]
     Active Substance: ALBUTEROL SULFATE
     Indication: BRONCHITIS
     Dosage: PRN FOR BRONCHITIS; ONGOING YES
     Route: 055
  14. SPIRONOLACTONE. [Concomitant]
     Active Substance: SPIRONOLACTONE
     Indication: FLUID RETENTION
     Dosage: ONGOING YES; STARTED AFTER ACTEMRA
     Route: 065
     Dates: start: 2011
  15. LEXAPRO [Concomitant]
     Active Substance: ESCITALOPRAM OXALATE
     Indication: DEPRESSION
     Route: 065
     Dates: start: 1990

REACTIONS (14)
  - Vaginal haemorrhage [Not Recovered/Not Resolved]
  - Memory impairment [Not Recovered/Not Resolved]
  - Fatigue [Not Recovered/Not Resolved]
  - Vascular rupture [Recovered/Resolved]
  - Arthropathy [Recovered/Resolved]
  - Migraine [Unknown]
  - Sjogren^s syndrome [Not Recovered/Not Resolved]
  - Unevaluable event [Not Recovered/Not Resolved]
  - Blood cholesterol increased [Not Recovered/Not Resolved]
  - Epistaxis [Recovered/Resolved]
  - Road traffic accident [Recovered/Resolved]
  - Sinus disorder [Recovered/Resolved]
  - Fluid retention [Not Recovered/Not Resolved]
  - Bronchitis [Recovered/Resolved]
